FAERS Safety Report 6383949-2 (Version None)
Quarter: 2009Q4

REPORT INFORMATION
  Report Type: 
  Country: None (occurrence: None)
  Receive Date: 20091001
  Receipt Date: 20090925
  Transmission Date: 20100525
  Serious: Yes (Other)
  Sender: FDA-Public Use
  Company Number: AU-AVENTIS-200920971GDDC

PATIENT
  Age: 62 Year
  Sex: Male

DRUGS (5)
  1. ARAVA [Suspect]
     Indication: RHEUMATOID ARTHRITIS
     Route: 048
     Dates: start: 20080511
  2. METHOTREXATE [Concomitant]
     Dosage: DOSE: UNK
  3. FOLIC ACID [Concomitant]
     Dosage: DOSE: UNK
  4. ENBREL [Concomitant]
     Dosage: DOSE: UNK
  5. PREDNISONE [Concomitant]
     Dosage: DOSE: UNK

REACTIONS (2)
  - OSTEOPOROSIS [None]
  - RIB FRACTURE [None]
